FAERS Safety Report 22168572 (Version 6)
Quarter: 2023Q4

REPORT INFORMATION
  Report Type: Spontaneous
  Country: JP (occurrence: JP)
  Receive Date: 20230403
  Receipt Date: 20231106
  Transmission Date: 20240109
  Serious: Yes (Hospitalization, Other)
  Sender: FDA-Public Use
  Company Number: JP-BRISTOL-MYERS SQUIBB COMPANY-BMS-2021-137767

PATIENT
  Age: 48 Year
  Sex: Female
  Weight: 53 kg

DRUGS (16)
  1. YERVOY [Suspect]
     Active Substance: IPILIMUMAB
     Indication: Non-small cell lung cancer recurrent
     Route: 041
     Dates: start: 20211122, end: 20211122
  2. YERVOY [Suspect]
     Active Substance: IPILIMUMAB
     Route: 041
     Dates: start: 20220204, end: 20220506
  3. YERVOY [Suspect]
     Active Substance: IPILIMUMAB
     Route: 041
  4. OPDIVO [Suspect]
     Active Substance: NIVOLUMAB
     Indication: Non-small cell lung cancer
     Route: 041
     Dates: start: 20211122, end: 20211122
  5. OPDIVO [Suspect]
     Active Substance: NIVOLUMAB
     Route: 041
     Dates: start: 20220114, end: 20220506
  6. OPDIVO [Suspect]
     Active Substance: NIVOLUMAB
     Route: 041
  7. CARBOPLATIN [Concomitant]
     Active Substance: CARBOPLATIN
     Indication: Non-small cell lung cancer recurrent
     Route: 041
     Dates: start: 20211122
  8. CARBOPLATIN [Concomitant]
     Active Substance: CARBOPLATIN
  9. PEMETREXED [Concomitant]
     Active Substance: PEMETREXED
     Indication: Non-small cell lung cancer recurrent
     Route: 041
     Dates: start: 20211122
  10. PEMETREXED [Concomitant]
     Active Substance: PEMETREXED
  11. PEMETREXED [Concomitant]
     Active Substance: PEMETREXED
  12. SUVOREXANT [Concomitant]
     Active Substance: SUVOREXANT
     Indication: Product used for unknown indication
     Route: 048
     Dates: start: 20211122
  13. ALPRAZOLAM [Concomitant]
     Active Substance: ALPRAZOLAM
     Indication: Product used for unknown indication
     Route: 048
     Dates: start: 20211122
  14. ALPRAZOLAM [Concomitant]
     Active Substance: ALPRAZOLAM
     Route: 048
  15. RETINOL [Concomitant]
     Active Substance: RETINOL
     Indication: Prophylaxis
     Route: 048
     Dates: start: 20211025
  16. TRIAZOLAM [Concomitant]
     Active Substance: TRIAZOLAM
     Indication: Product used for unknown indication
     Route: 048
     Dates: start: 20211122

REACTIONS (11)
  - Hyperthyroidism [Unknown]
  - Pyrexia [Recovering/Resolving]
  - Tenderness [Recovering/Resolving]
  - Thyroiditis [Recovered/Resolved]
  - Thyroiditis subacute [Recovering/Resolving]
  - Oropharyngeal pain [Recovering/Resolving]
  - Immune-mediated dermatitis [Recovered/Resolved]
  - Mouth ulceration [Recovered/Resolved]
  - Pruritus [Recovered/Resolved]
  - Erythema [Recovered/Resolved]
  - Immune-mediated arthritis [Recovered/Resolved]

NARRATIVE: CASE EVENT DATE: 20211207
